FAERS Safety Report 5712636-6 (Version None)
Quarter: 2008Q2

REPORT INFORMATION
  Report Type: 
  Country: None (occurrence: None)
  Receive Date: 20080422
  Receipt Date: 20080416
  Transmission Date: 20081010
  Serious: Yes (Hospitalization)
  Sender: FDA-Public Use
  Company Number: US-AVENTIS-200813495GDDC

PATIENT
  Age: 66 Year
  Sex: Female
  Weight: 69.5 kg

DRUGS (5)
  1. LEFLUNOMIDE [Suspect]
     Route: 048
  2. HUMIRA [Suspect]
     Indication: RHEUMATOID ARTHRITIS
     Dosage: DOSE: 40MG/0.8 ML
     Route: 058
     Dates: start: 20080123
  3. PRINZIDE                           /00977901/ [Concomitant]
     Dosage: DOSE: 20/25
     Route: 048
  4. ATORVASTATIN CALCIUM [Concomitant]
  5. IBUPROFEN [Concomitant]
     Dosage: DOSE: UNK
     Route: 048

REACTIONS (8)
  - ASTHENIA [None]
  - BLOOD PRESSURE INCREASED [None]
  - DIZZINESS [None]
  - DYSPNOEA [None]
  - HEART RATE IRREGULAR [None]
  - NAUSEA [None]
  - VISION BLURRED [None]
  - WEIGHT DECREASED [None]
